FAERS Safety Report 6094790-2 (Version None)
Quarter: 2009Q1

REPORT INFORMATION
  Report Type: 
  Country: None (occurrence: None)
  Receive Date: 20090225
  Receipt Date: 20090210
  Transmission Date: 20090719
  Serious: Yes (Hospitalization)
  Sender: FDA-Public Use
  Company Number: 237560J08USA

PATIENT
  Age: 59 Year
  Sex: Female
  Weight: 57 kg

DRUGS (7)
  1. REBIF [Suspect]
     Indication: MULTIPLE SCLEROSIS
     Dosage: 44 MCG, 3 IN 1 WEEKS, SUBCUTANEOUS
     Route: 058
     Dates: start: 20080604
  2. TYLENOL (COTYLENOL) [Concomitant]
  3. REGLAN [Concomitant]
  4. QVAR [Concomitant]
  5. ALBUTEROL [Concomitant]
  6. NASAREL [Concomitant]
  7. PRILOSEC [Concomitant]

REACTIONS (6)
  - CONCUSSION [None]
  - FALL [None]
  - HEAD INJURY [None]
  - LUMBAR VERTEBRAL FRACTURE [None]
  - PARKINSONISM [None]
  - SPINAL COMPRESSION FRACTURE [None]
